FAERS Safety Report 11330360 (Version 1)
Quarter: 2015Q3

REPORT INFORMATION
  Report Type: Spontaneous
  Country: US (occurrence: None)
  Receive Date: 20150730
  Receipt Date: 20150730
  Transmission Date: 20151125
  Serious: Yes (Other)
  Sender: FDA-Public Use
  Company Number: None

PATIENT
  Age: 46 Year
  Sex: Male
  Weight: 102.06 kg

DRUGS (10)
  1. ADVIL [Concomitant]
     Active Substance: IBUPROFEN
  2. VIVITROL [Suspect]
     Active Substance: NALTREXONE
     Dosage: 1X/MONTH  INTO THE MUSCLE
     Route: 030
     Dates: start: 20150716
  3. NEURONTIN [Concomitant]
     Active Substance: GABAPENTIN
  4. SUMATRIPTAN. [Concomitant]
     Active Substance: SUMATRIPTAN
  5. PRILOSEC [Concomitant]
     Active Substance: OMEPRAZOLE MAGNESIUM
  6. LEXAPRO [Concomitant]
     Active Substance: ESCITALOPRAM OXALATE
  7. TYLENOL [Concomitant]
     Active Substance: ACETAMINOPHEN
  8. CLONADINE [Concomitant]
  9. LORAZAPAM [Concomitant]
     Active Substance: LORAZEPAM
  10. IMODIUM [Concomitant]
     Active Substance: LOPERAMIDE HYDROCHLORIDE

REACTIONS (6)
  - Diarrhoea [None]
  - Malaise [None]
  - Vomiting [None]
  - Depression [None]
  - Chills [None]
  - Headache [None]

NARRATIVE: CASE EVENT DATE: 20150723
